FAERS Safety Report 10004575 (Version 1)
Quarter: 2014Q1

REPORT INFORMATION
  Report Type: Spontaneous
  Country: US (occurrence: US)
  Receive Date: 20140312
  Receipt Date: 20140312
  Transmission Date: 20141002
  Serious: Yes (Other)
  Sender: FDA-Public Use
  Company Number: US-MYLANLABS-2014S1004691

PATIENT
  Age: 66 Year
  Sex: Female

DRUGS (5)
  1. SUMATRIPTAN SUCCINATE TABLETS [Suspect]
     Indication: MIGRAINE
     Route: 048
     Dates: end: 201401
  2. DIPYRIDAMOLE [Suspect]
  3. CITALOPRAM HYDROBROMIDE [Concomitant]
  4. LANSOPRAZOLE [Concomitant]
  5. CLONAZEPAM [Concomitant]

REACTIONS (3)
  - Electrocardiogram Q wave abnormal [Recovered/Resolved]
  - Electrocardiogram T wave inversion [Recovered/Resolved]
  - Heart rate irregular [Recovered/Resolved]
